FAERS Safety Report 14980638 (Version 3)
Quarter: 2018Q3

REPORT INFORMATION
  Report Type: Report from Study
  Country: None (occurrence: FI)
  Receive Date: 20180606
  Receipt Date: 20180717
  Transmission Date: 20181010
  Serious: Yes (Hospitalization)
  Sender: FDA-Public Use
  Company Number: FI-ABBVIE-18P-055-2370261-00

PATIENT
  Age: 77 Year
  Sex: Female
  Weight: 84.4 kg

DRUGS (20)
  1. METOHEXAL [Concomitant]
     Active Substance: METOPROLOL SUCCINATE
     Indication: HYPERTENSION
     Route: 048
     Dates: start: 20120710
  2. VENETOCLAX. [Suspect]
     Active Substance: VENETOCLAX
     Route: 048
     Dates: start: 20180517
  3. MOBILAT [Concomitant]
     Indication: NECK PAIN
     Route: 061
     Dates: start: 20180517
  4. FUROSEMIDE. [Concomitant]
     Active Substance: FUROSEMIDE
     Indication: FLUID RETENTION
     Dosage: 10?20 MG
     Route: 042
     Dates: start: 20180514
  5. TRAMAL [Concomitant]
     Active Substance: TRAMADOL
     Indication: PAIN PROPHYLAXIS
     Route: 048
     Dates: start: 20180114
  6. AMLODIPIN [Concomitant]
     Active Substance: AMLODIPINE BESYLATE
     Indication: HYPERTENSION
     Route: 048
     Dates: start: 20171010
  7. NEXIUM [Concomitant]
     Active Substance: ESOMEPRAZOLE MAGNESIUM
     Indication: ANTACID THERAPY
     Route: 048
     Dates: start: 20160513
  8. ZOPINOX [Concomitant]
     Active Substance: ZOPICLONE
     Indication: SLEEP DISORDER THERAPY
     Route: 048
     Dates: start: 20170324
  9. ALLOPURINOL. [Concomitant]
     Active Substance: ALLOPURINOL
     Indication: PROPHYLAXIS
     Route: 048
     Dates: start: 20180514, end: 20180524
  10. ONDANSETRON [Concomitant]
     Active Substance: ONDANSETRON
     Indication: PROPHYLAXIS OF NAUSEA AND VOMITING
     Dosage: DURING AZACITIDINE
     Route: 048
     Dates: start: 20180515
  11. TRAMAL RETARD [Concomitant]
     Active Substance: TRAMADOL
     Indication: FRACTURE PAIN
     Route: 048
     Dates: start: 20180416
  12. NORMAL SALINE [Concomitant]
     Active Substance: SODIUM CHLORIDE
     Indication: PROPHYLAXIS
     Route: 042
     Dates: start: 20180514, end: 20180520
  13. MOBILAT [Concomitant]
     Indication: MUSCULOSKELETAL PAIN
  14. ALENDRONAT [Concomitant]
     Active Substance: ALENDRONATE SODIUM
     Indication: COMPRESSION FRACTURE
     Route: 048
     Dates: start: 20180416
  15. VENETOCLAX. [Suspect]
     Active Substance: VENETOCLAX
     Indication: ACUTE MYELOID LEUKAEMIA
     Route: 048
     Dates: start: 20180515, end: 20180515
  16. AZACITIDINE. [Suspect]
     Active Substance: AZACITIDINE
     Indication: ACUTE MYELOID LEUKAEMIA
     Dosage: DAYS 1?7 OF 28 DAYS CYCLE
     Route: 058
     Dates: start: 20180515
  17. PEGORION [Concomitant]
     Active Substance: POLYETHYLENE GLYCOL 4000
     Indication: CONSTIPATION PROPHYLAXIS
     Route: 048
     Dates: start: 20180115
  18. ALLONOL [Concomitant]
     Active Substance: ALLOPURINOL
     Indication: PROPHYLAXIS
     Route: 048
     Dates: start: 20180525
  19. VENETOCLAX. [Suspect]
     Active Substance: VENETOCLAX
     Route: 048
     Dates: start: 20180516, end: 20180516
  20. TRAMAL RETARD [Concomitant]
     Active Substance: TRAMADOL
     Indication: PAIN PROPHYLAXIS

REACTIONS (1)
  - Escherichia urinary tract infection [Recovered/Resolved]

NARRATIVE: CASE EVENT DATE: 20180528
